FAERS Safety Report 23589871 (Version 2)
Quarter: 2024Q1

REPORT INFORMATION
  Report Type: Spontaneous
  Country: CN (occurrence: CN)
  Receive Date: 20240304
  Receipt Date: 20240306
  Transmission Date: 20240409
  Serious: Yes (Other)
  Sender: FDA-Public Use
  Company Number: CN-JNJFOC-20240278845

PATIENT
  Age: 28 Day
  Sex: Male
  Weight: 1.41 kg

DRUGS (1)
  1. CHILDRENS MOTRIN [Suspect]
     Active Substance: IBUPROFEN
     Indication: Patent ductus arteriosus
     Dosage: 20MG/KG-10MG/KG-10MG/KG
     Route: 048
     Dates: start: 20240219, end: 20240221

REACTIONS (2)
  - Off label use [Unknown]
  - Oliguria [Recovered/Resolved]

NARRATIVE: CASE EVENT DATE: 20240219
